FAERS Safety Report 8063943-6 (Version None)
Quarter: 2012Q1

REPORT INFORMATION
  Report Type: 
  Country: None (occurrence: None)
  Receive Date: 20120123
  Receipt Date: 20120114
  Transmission Date: 20120608
  Serious: Yes (Hospitalization, Other)
  Sender: FDA-Public Use
  Company Number: PHHY2009CA34219

PATIENT
  Sex: Male

DRUGS (1)
  1. CLOZARIL [Suspect]
     Indication: SCHIZOPHRENIA
     Dates: start: 20110601

REACTIONS (5)
  - SWELLING FACE [None]
  - DROOLING [None]
  - TOOTHACHE [None]
  - ORAL DISORDER [None]
  - ORAL PAIN [None]
